FAERS Safety Report 18951592 (Version 3)
Quarter: 2021Q2

REPORT INFORMATION
  Report Type: Report from Study
  Country: MX (occurrence: MX)
  Receive Date: 20210301
  Receipt Date: 20210602
  Transmission Date: 20210717
  Serious: Yes (Life-Threatening, Hospitalization)
  Sender: FDA-Public Use
  Company Number: MX-ROCHE-2740169

PATIENT
  Age: 41 Year
  Sex: Male
  Weight: 67 kg

DRUGS (16)
  1. INTERFERON BETA?1A [Suspect]
     Active Substance: INTERFERON BETA-1A
     Indication: RELAPSING-REMITTING MULTIPLE SCLEROSIS
     Route: 058
     Dates: start: 20120710
  2. ACETAMINOPHEN. [Concomitant]
     Active Substance: ACETAMINOPHEN
     Indication: PREMEDICATION
     Dates: start: 20120710
  3. DIPHENHYDRAMINE. [Concomitant]
     Active Substance: DIPHENHYDRAMINE
     Indication: PREMEDICATION
     Dosage: NEXT DOSE ON : 24/JUL/2012, 26/DEC/2012, 13/JUN/2013, 25/NOV/2013, 26/JUN/2014, 10/JUL/2014, 11/DEC/
     Dates: start: 20120710
  4. LEVOFLOXACINE [Concomitant]
     Active Substance: LEVOFLOXACIN
     Dates: start: 20210207, end: 20210214
  5. METHYLPREDNISOLONE. [Concomitant]
     Active Substance: METHYLPREDNISOLONE
     Indication: PREMEDICATION
     Dosage: NEXT DOSE ON : 24/JUL/2012, 26/DEC/2012, 13/JUN/2013, 25/NOV/2013, 26/JUN/2014, 10/JUL/2014, 11/DEC/
     Dates: start: 20120710
  6. PLACEBO [Suspect]
     Active Substance: UNSPECIFIED INGREDIENT
     Dosage: NEXT DOSE ON 13/JUN/2013 (WEEK 48), 25/NOV/2013 (WEEK 72)
     Route: 042
     Dates: start: 20121226
  7. OMEPRAZOLE. [Concomitant]
     Active Substance: OMEPRAZOLE
     Indication: HICCUPS
     Dates: start: 20201216
  8. OCRELIZUMAB. [Suspect]
     Active Substance: OCRELIZUMAB
     Dosage: NEXT DOSE OF 520 ML ON 28/MAY/2015 (520 ML; WEEK 48), 17/NOV/2015 (WEEK 72), 02/MAY/2016 (WEEK 96),
     Route: 042
     Dates: start: 20141211
  9. ACETAMINOPHEN. [Concomitant]
     Active Substance: ACETAMINOPHEN
     Indication: LIGAMENT SPRAIN
     Dosage: NEXT DOSE ON : 26/DEC/2012, 13/JUN/2013, 25/NOV/2013, 26/JUN/2014, 10/JUL/2014, 11/DEC/2014, 28/MAY/
     Dates: start: 20120724
  10. PLACEBO [Suspect]
     Active Substance: UNSPECIFIED INGREDIENT
     Indication: RELAPSING-REMITTING MULTIPLE SCLEROSIS
     Dosage: NEXT DOSE ON 24/JUL/2012 (WEEK 2)
     Route: 042
     Dates: start: 20120710, end: 20120724
  11. PARACETAMOL [Concomitant]
     Active Substance: ACETAMINOPHEN
     Dosage: OLE?WEEK 288
     Dates: start: 20200129
  12. INTERFERON BETA?1A [Suspect]
     Active Substance: INTERFERON BETA-1A
     Dosage: LAST DOSE PRIOR TO SAE: 09/JUN/2014
     Route: 058
     Dates: start: 20140514, end: 20140609
  13. OCRELIZUMAB. [Suspect]
     Active Substance: OCRELIZUMAB
     Indication: RELAPSING-REMITTING MULTIPLE SCLEROSIS
     Dosage: NEXT DOSE ON 10/JUL/2014 (260 ML; WEEK 2)
     Route: 042
     Dates: start: 20140626
  14. ACETAMINOPHEN. [Concomitant]
     Active Substance: ACETAMINOPHEN
     Indication: BACK PAIN
     Dates: start: 20181107, end: 20181114
  15. ACETAMINOPHEN. [Concomitant]
     Active Substance: ACETAMINOPHEN
     Dates: start: 20170821, end: 20170828
  16. ACETAMINOPHEN. [Concomitant]
     Active Substance: ACETAMINOPHEN
     Dates: start: 20171123, end: 20171127

REACTIONS (1)
  - COVID-19 pneumonia [Recovered/Resolved]

NARRATIVE: CASE EVENT DATE: 20201216
